FAERS Safety Report 9737208 (Version 2)
Quarter: 2013Q4

REPORT INFORMATION
  Report Type: Spontaneous
  Country: US (occurrence: US)
  Receive Date: 20131206
  Receipt Date: 20131219
  Transmission Date: 20140711
  Serious: Yes (Hospitalization)
  Sender: FDA-Public Use
  Company Number: PHHY2013US141526

PATIENT
  Sex: Male

DRUGS (10)
  1. METOPROLOL [Suspect]
     Indication: HYPERTENSION
     Dosage: 50 MG, BID
     Route: 048
     Dates: start: 20111230, end: 20131119
  2. LOSARTAN [Suspect]
     Indication: HYPERTENSION
     Dosage: 50 MG, QD
     Route: 048
     Dates: start: 20100922, end: 20131125
  3. BABY ASPIRIN [Concomitant]
     Dosage: UNK UKN, UNK
     Dates: start: 20131119
  4. LIPITOR [Concomitant]
     Dosage: UNK UKN, UNK
     Dates: start: 20131119
  5. COREG [Concomitant]
     Dosage: UNK UKN, UNK
     Dates: start: 20131119, end: 20131202
  6. PLAVIX [Concomitant]
     Dosage: UNK UKN, UNK
     Dates: start: 20131119
  7. TRICOR [Concomitant]
     Dosage: UNK UKN, UNK
     Dates: start: 20131119
  8. PROZAC [Concomitant]
     Dosage: UNK UKN, UNK
     Dates: start: 20130215
  9. ZANTAC [Concomitant]
     Dosage: UNK UKN, UNK
     Dates: start: 20130910
  10. CLARITIN-D [Concomitant]
     Dosage: UNK UKN, UNK
     Dates: start: 20010822

REACTIONS (8)
  - Myocardial infarction [Recovering/Resolving]
  - Arthralgia [Unknown]
  - Feeling abnormal [Unknown]
  - Deafness [Unknown]
  - Bronchospasm [Unknown]
  - Fatigue [Unknown]
  - Diarrhoea [Unknown]
  - Drug ineffective [Unknown]
